FAERS Safety Report 13601268 (Version 1)
Quarter: 2017Q2

REPORT INFORMATION
  Report Type: Spontaneous
  Country: US (occurrence: US)
  Receive Date: 20170601
  Receipt Date: 20170601
  Transmission Date: 20170830
  Serious: Yes (Hospitalization)
  Sender: FDA-Public Use
  Company Number: None

PATIENT
  Age: 66 Year
  Sex: Female
  Weight: 76 kg

DRUGS (2)
  1. HERCEPTIN [Suspect]
     Active Substance: TRASTUZUMAB
     Indication: BREAST CANCER METASTATIC
     Dosage: FREQUENCY - Q3WKS
     Route: 042
     Dates: start: 20161203, end: 20170418
  2. PERTUZUMAB [Suspect]
     Active Substance: PERTUZUMAB
     Dosage: FREQUENCY - Q3WKS
     Route: 042
     Dates: start: 20161203, end: 20170418

REACTIONS (2)
  - Spinal cord compression [None]
  - Disease progression [None]

NARRATIVE: CASE EVENT DATE: 20170505
